FAERS Safety Report 7813007-9 (Version None)
Quarter: 2011Q4

REPORT INFORMATION
  Report Type: 
  Country: None (occurrence: None)
  Receive Date: 20111013
  Receipt Date: 20110928
  Transmission Date: 20120403
  Serious: Yes (Death)
  Sender: FDA-Public Use
  Company Number: US-ROCHE-1000787

PATIENT

DRUGS (3)
  1. GRANISETRON HCL [Suspect]
     Indication: VOMITING
  2. CISPLATIN [Concomitant]
  3. GRANISETRON HCL [Suspect]
     Indication: NAUSEA
     Route: 048

REACTIONS (1)
  - MEGACOLON [None]
